FAERS Safety Report 6858293-7 (Version None)
Quarter: 2010Q3

REPORT INFORMATION
  Report Type: 
  Country: None (occurrence: None)
  Receive Date: 20100719
  Receipt Date: 20080204
  Transmission Date: 20110219
  Serious: Yes (Other)
  Sender: FDA-Public Use
  Company Number: US-PFIZER INC-2008011967

PATIENT
  Sex: Female
  Weight: 83.9 kg

DRUGS (5)
  1. CHANTIX [Suspect]
     Indication: SMOKING CESSATION THERAPY
     Route: 048
     Dates: start: 20080119
  2. ZOLOFT [Concomitant]
  3. KLONOPIN [Concomitant]
  4. LOTENSIN [Concomitant]
  5. NIASPAN [Concomitant]

REACTIONS (1)
  - DEPRESSION [None]
